FAERS Safety Report 5265589-1 (Version None)
Quarter: 2007Q1

REPORT INFORMATION
  Report Type: 
  Country: None (occurrence: None)
  Receive Date: 20061213
  Receipt Date: 20021017
  Transmission Date: 20070707
  Serious: No
  Sender: FDA-Public Use
  Company Number: 2002UW14061

PATIENT
  Age: 78 Year
  Sex: Female
  Weight: 46.2669 kg

DRUGS (1)
  1. TAMOXIFEN CITRATE [Suspect]
     Indication: BREAST CANCER
     Dosage: 20 MG PO
     Route: 048

REACTIONS (1)
  - CEREBROVASCULAR ACCIDENT [None]
